FAERS Safety Report 9278407 (Version 1)
Quarter: 2013Q2

REPORT INFORMATION
  Report Type: Report from Study
  Country: KR (occurrence: KR)
  Receive Date: 20130508
  Receipt Date: 20130508
  Transmission Date: 20140414
  Serious: Yes (Hospitalization)
  Sender: FDA-Public Use
  Company Number: KR-SANOFI-AVENTIS-2013SA044211

PATIENT
  Age: 69 Year
  Sex: Male
  Weight: 44.6 kg

DRUGS (6)
  1. RILUZOLE [Suspect]
     Indication: AMYOTROPHIC LATERAL SCLEROSIS
     Route: 048
     Dates: start: 20120831
  2. VITAMINUM B COMP. [Concomitant]
     Indication: VITAMIN SUPPLEMENTATION
     Route: 048
     Dates: start: 20120616
  3. ALL OTHER THERAPEUTIC PRODUCTS [Concomitant]
     Indication: NUTRITIONAL SUPPLEMENTATION
     Route: 048
     Dates: start: 20120716
  4. VITAMIN C [Concomitant]
     Indication: VITAMIN C
     Route: 048
     Dates: start: 20120716
  5. TOCOPHEROL [Concomitant]
     Indication: VITAMIN E
     Route: 048
     Dates: start: 20120716
  6. SURFOLASE [Concomitant]
     Route: 048
     Dates: start: 20120716

REACTIONS (1)
  - Gastrostomy [Recovered/Resolved]
